FAERS Safety Report 19269762 (Version 1)
Quarter: 2021Q2

REPORT INFORMATION
  Report Type: Spontaneous
  Country: GB (occurrence: GB)
  Receive Date: 20210518
  Receipt Date: 20210518
  Transmission Date: 20210717
  Serious: Yes (Hospitalization)
  Sender: FDA-Public Use
  Company Number: GB-VERTEX PHARMACEUTICALS-2021-007542

PATIENT
  Age: 34 Year
  Sex: Male

DRUGS (2)
  1. KAFTRIO [Suspect]
     Active Substance: ELEXACAFTOR\IVACAFTOR\TEZACAFTOR
     Indication: CYSTIC FIBROSIS
     Dosage: IVA 75 MG/ TEZA 50 MG/ELEXA 100 MG, BD
     Route: 048
  2. KALYDECO [Suspect]
     Active Substance: IVACAFTOR
     Indication: CYSTIC FIBROSIS
     Dosage: IVACFTOR 150 MG. ONCE DAILY
     Route: 048

REACTIONS (1)
  - Alcohol detoxification [Recovered/Resolved]

NARRATIVE: CASE EVENT DATE: 202104
